FAERS Safety Report 9648458 (Version 4)
Quarter: 2014Q1

REPORT INFORMATION
  Report Type: Spontaneous
  Country: JP (occurrence: JP)
  Receive Date: 20131028
  Receipt Date: 20140205
  Transmission Date: 20141002
  Serious: Yes (Disabling)
  Sender: FDA-Public Use
  Company Number: JP-AMGEN-JPNSP2013075838

PATIENT
  Age: 85 Year
  Sex: Male
  Weight: 51 kg

DRUGS (2)
  1. RANMARK [Suspect]
     Indication: PROSTATE CANCER
     Dosage: 120 MG, UNK
     Route: 058
  2. ZOMETA [Suspect]
     Indication: PROSTATE CANCER
     Dosage: 4 MG, UNK
     Route: 041

REACTIONS (1)
  - Osteonecrosis of jaw [Not Recovered/Not Resolved]
